FAERS Safety Report 22823534 (Version 2)
Quarter: 2023Q4

REPORT INFORMATION
  Report Type: Spontaneous
  Country: FR (occurrence: FR)
  Receive Date: 20230815
  Receipt Date: 20231006
  Transmission Date: 20240110
  Serious: Yes (Death)
  Sender: FDA-Public Use
  Company Number: FR-BRAEBURN INC-2023BBN00241

PATIENT
  Age: 46 Year
  Sex: Female
  Weight: 55 kg

DRUGS (18)
  1. BUPRENORPHINE [Suspect]
     Active Substance: BUPRENORPHINE
     Indication: Drug use disorder
     Dosage: 64 MG, 1X/MONTH
     Route: 058
  2. BUPRENORPHINE [Suspect]
     Active Substance: BUPRENORPHINE
     Indication: Drug use disorder
     Dosage: 96 MG, 1X/MONTH
     Route: 058
     Dates: start: 20230530, end: 20230725
  3. BUPRENORPHINE [Suspect]
     Active Substance: BUPRENORPHINE
     Dosage: 96 MG, 1X/MONTH
     Route: 058
     Dates: start: 20230725
  4. LEVOCAINE S.P. AL [Concomitant]
     Indication: Product used for unknown indication
     Dosage: UNK
     Route: 065
  5. CLINDAMYCIN [Concomitant]
     Active Substance: CLINDAMYCIN
     Indication: Product used for unknown indication
     Dosage: 300 MG
     Route: 048
     Dates: start: 202306
  6. APIXABAN [Concomitant]
     Active Substance: APIXABAN
     Indication: Product used for unknown indication
     Dosage: UNK
     Route: 065
     Dates: start: 202306
  7. AMITRIPTYLINE HYDROCHLORIDE [Concomitant]
     Active Substance: AMITRIPTYLINE HYDROCHLORIDE
     Indication: Product used for unknown indication
     Dosage: 40 MG/ML, FOR SEVERAL YEARS
     Route: 048
  8. VALIUM [Concomitant]
     Active Substance: DIAZEPAM
     Indication: Product used for unknown indication
     Dosage: 2 MG, 1X/DAY, FOR SEVERAL YEARS
     Route: 048
  9. ABILIFY [Concomitant]
     Active Substance: ARIPIPRAZOLE
     Indication: Product used for unknown indication
     Dosage: 15 MG, 1X/DAY, FOR SEVERAL YEARS
     Route: 048
  10. DESOGESTREL [Concomitant]
     Active Substance: DESOGESTREL
     Indication: Product used for unknown indication
     Dosage: 75 ?G, 1X/DAY
     Route: 065
  11. ACETAMINOPHEN [Concomitant]
     Active Substance: ACETAMINOPHEN
     Indication: Product used for unknown indication
     Dosage: 1 G, 1X/DAY
     Route: 048
  12. ACUPAN [Concomitant]
     Active Substance: NEFOPAM HYDROCHLORIDE
     Indication: Product used for unknown indication
     Dosage: UNK, AS NEEDED
     Route: 048
  13. NICOTINE [Concomitant]
     Active Substance: NICOTINE
     Indication: Product used for unknown indication
     Dosage: 21 MG, 1X/DAY
     Route: 062
  14. NICOTINE [Concomitant]
     Active Substance: NICOTINE
     Dosage: 7 MG, 1X/DAY
     Route: 062
  15. NICOPASS [Concomitant]
     Active Substance: NICOTINE
     Indication: Product used for unknown indication
     Dosage: 1.5 MG
     Route: 048
  16. ELIQUIS [Concomitant]
     Active Substance: APIXABAN
     Indication: Product used for unknown indication
     Dosage: 5 MG, 2X/DAY
     Route: 065
  17. LEVOFLOXACIN [Concomitant]
     Active Substance: LEVOFLOXACIN
     Indication: Product used for unknown indication
     Dosage: 500 MG
     Route: 048
     Dates: start: 202306
  18. SUBUTEX [Concomitant]
     Active Substance: BUPRENORPHINE HYDROCHLORIDE
     Indication: Product used for unknown indication

REACTIONS (2)
  - Death [Fatal]
  - Drug dependence [Unknown]

NARRATIVE: CASE EVENT DATE: 20230627
